FAERS Safety Report 7021541-7 (Version None)
Quarter: 2010Q3

REPORT INFORMATION
  Report Type: 
  Country: None (occurrence: None)
  Receive Date: 20100928
  Receipt Date: 20100702
  Transmission Date: 20110219
  Serious: Yes (Other)
  Sender: FDA-Public Use
  Company Number: ENT 2010-0080

PATIENT
  Age: 62 Year
  Sex: Female

DRUGS (5)
  1. COMTAN [Suspect]
     Indication: PARKINSON'S DISEASE
     Dosage: 200 MG,
     Dates: start: 20070101
  2. REQUIP XL [Suspect]
     Indication: PARKINSON'S DISEASE
     Dosage: SEE IMAGE
     Route: 048
     Dates: start: 20080101
  3. CO-CARELDOPA (200 MG) (LEVODOPA) [Suspect]
     Indication: PARKINSON'S DISEASE
     Dosage: 100/25 MG, ORAL; 800 MG, 4 IN 1 D, ORAL
     Route: 048
     Dates: start: 20020101
  4. CO-CARELDOPA (200 MG) (LEVODOPA) [Suspect]
     Indication: PARKINSON'S DISEASE
     Dosage: 100/25 MG, ORAL; 800 MG, 4 IN 1 D, ORAL
     Route: 048
     Dates: start: 20070101
  5. APOKYN [Suspect]
     Indication: PARKINSON'S DISEASE
     Dosage: 03 ML AS NEEDED, TWICE OR FOUR TIMES A DAY OR SOMETIMES NOT AT ALL, INJECTION NOS

REACTIONS (8)
  - ABASIA [None]
  - IMPAIRED DRIVING ABILITY [None]
  - INAPPROPRIATE SCHEDULE OF DRUG ADMINISTRATION [None]
  - INITIAL INSOMNIA [None]
  - MOVEMENT DISORDER [None]
  - MUSCLE SPASMS [None]
  - MUSCULOSKELETAL STIFFNESS [None]
  - PAIN [None]
